FAERS Safety Report 18423783 (Version 2)
Quarter: 2020Q4

REPORT INFORMATION
  Report Type: Spontaneous
  Country: DE (occurrence: DE)
  Receive Date: 20201024
  Receipt Date: 20201111
  Transmission Date: 20210114
  Serious: Yes (Hospitalization)
  Sender: FDA-Public Use
  Company Number: DE-ROCHE-2701605

PATIENT
  Age: 71 Year
  Sex: Female
  Weight: 64 kg

DRUGS (1)
  1. TECENTRIQ [Suspect]
     Active Substance: ATEZOLIZUMAB
     Indication: BRONCHIAL CARCINOMA
     Route: 042

REACTIONS (3)
  - Monoparesis [Not Recovered/Not Resolved]
  - Radiculopathy [Unknown]
  - Limbic encephalitis [Unknown]

NARRATIVE: CASE EVENT DATE: 20200715
